FAERS Safety Report 19780603 (Version 3)
Quarter: 2021Q4

REPORT INFORMATION
  Report Type: Report from Study
  Country: US (occurrence: US)
  Receive Date: 20210902
  Receipt Date: 20211203
  Transmission Date: 20220304
  Serious: Yes (Other)
  Sender: FDA-Public Use
  Company Number: US-OTSUKA-2021_029998

PATIENT
  Sex: Male

DRUGS (1)
  1. CEDAZURIDINE\DECITABINE [Suspect]
     Active Substance: CEDAZURIDINE\DECITABINE
     Indication: Refractory anaemia with an excess of blasts
     Dosage: 35/100 MG, QD (DAYS 1-5 OF EACH 28 DAY CYCLE)
     Route: 065
     Dates: start: 20210811, end: 20211130

REACTIONS (4)
  - Full blood count abnormal [Unknown]
  - Frequent bowel movements [Unknown]
  - Glossodynia [Unknown]
  - Gingival bleeding [Unknown]
